FAERS Safety Report 6075309-9 (Version None)
Quarter: 2009Q1

REPORT INFORMATION
  Report Type: 
  Country: None (occurrence: None)
  Receive Date: 20090212
  Receipt Date: 20090206
  Transmission Date: 20090719
  Serious: Yes (Death, Life-Threatening)
  Sender: FDA-Public Use
  Company Number: AR-NOVOPROD-283722

PATIENT
  Sex: Female
  Weight: 27.1 kg

DRUGS (2)
  1. NORDITROPIN [Suspect]
     Indication: GROWTH HORMONE DEFICIENCY
     Dosage: 1.3 MG, QD
     Route: 058
     Dates: start: 20070401, end: 20081201
  2. LEVOTIROXINA [Concomitant]
     Dosage: 37.5 UG, QD
     Route: 048

REACTIONS (1)
  - MEDULLOBLASTOMA RECURRENT [None]
